FAERS Safety Report 25566816 (Version 1)
Quarter: 2025Q3

REPORT INFORMATION
  Report Type: Report from Study
  Country: US (occurrence: US)
  Receive Date: 20250716
  Receipt Date: 20250716
  Transmission Date: 20251021
  Serious: Yes (Life-Threatening, Hospitalization, Other)
  Sender: UCB
  Company Number: US-UCBSA-2025010796

PATIENT
  Age: 36 Year
  Sex: Female
  Weight: 60.3 kg

DRUGS (2)
  1. FINTEPLA [Suspect]
     Active Substance: FENFLURAMINE
     Indication: Lennox-Gastaut syndrome
     Dosage: 4 MILLILITER, 2X/DAY (BID)
     Route: 048
     Dates: start: 20230602
  2. FINTEPLA [Suspect]
     Active Substance: FENFLURAMINE
     Dosage: 4 MILLILITER, 2X/DAY (BID)
     Dates: start: 20230602

REACTIONS (7)
  - Sepsis [Recovered/Resolved]
  - Pneumonia [Recovered/Resolved]
  - Influenza [Recovered/Resolved]
  - Swollen tongue [Recovered/Resolved]
  - Weight increased [Not Recovered/Not Resolved]
  - Haemoglobin decreased [Unknown]
  - Aortic valve thickening [Unknown]

NARRATIVE: CASE EVENT DATE: 20250320
